FAERS Safety Report 9148535 (Version 2)
Quarter: 2013Q1

REPORT INFORMATION
  Report Type: Spontaneous
  Country: US (occurrence: None)
  Receive Date: 20130222
  Receipt Date: 20130313
  Transmission Date: 20140127
  Serious: Yes (Death)
  Sender: FDA-Public Use
  Company Number: CRC-13-156

PATIENT
  Age: 78 Year
  Sex: Female

DRUGS (1)
  1. LIPODOX [Suspect]
     Dates: start: 20120803

REACTIONS (1)
  - Unevaluable event [None]
